FAERS Safety Report 6478045-X (Version None)
Quarter: 2009Q4

REPORT INFORMATION
  Report Type: 
  Country: None (occurrence: None)
  Receive Date: 20091207
  Receipt Date: 20091127
  Transmission Date: 20100525
  Serious: Yes (Hospitalization)
  Sender: FDA-Public Use
  Company Number: BR-ABBOTT-09P-020-0600604-00

PATIENT
  Sex: Female
  Weight: 68 kg

DRUGS (7)
  1. HUMIRA [Suspect]
     Indication: RHEUMATOID ARTHRITIS
     Route: 058
     Dates: start: 20070601
  2. METHOTREXATE [Concomitant]
     Indication: RHEUMATOID ARTHRITIS
     Route: 048
     Dates: start: 20040101
  3. METICORTEN [Concomitant]
     Indication: RHEUMATOID ARTHRITIS
     Route: 048
     Dates: start: 20060101
  4. CAPTOPRIL [Concomitant]
     Indication: HYPERTENSION
     Route: 048
     Dates: start: 20060101
  5. TORSILAX [Concomitant]
     Indication: PAIN
     Route: 048
  6. LISADOR [Concomitant]
     Indication: PAIN
     Route: 048
  7. DORFLEX [Concomitant]
     Indication: PAIN
     Route: 048

REACTIONS (5)
  - ARTHRITIS [None]
  - FALL [None]
  - TENDON RUPTURE [None]
  - UPPER LIMB FRACTURE [None]
  - WEIGHT INCREASED [None]
